FAERS Safety Report 10744655 (Version 7)
Quarter: 2015Q1

REPORT INFORMATION
  Report Type: Spontaneous
  Country: US (occurrence: None)
  Receive Date: 20150126
  Receipt Date: 20150311
  Transmission Date: 20150721
  Serious: Yes (Life-Threatening, Hospitalization, Other)
  Sender: FDA-Public Use
  Company Number: ADR-2012-00419

PATIENT
  Sex: Male

DRUGS (10)
  1. OXYCODONE [Suspect]
     Active Substance: OXYCODONE
  2. HYDROMORPHONE INTRATHECAL [Suspect]
     Active Substance: HYDROMORPHONE
  3. FENTANYL INTRATHECAL [Suspect]
     Active Substance: FENTANYL
  4. VANEX [Suspect]
     Active Substance: GUAIFENESIN\PSEUDOEPHEDRINE HYDROCHLORIDE
  5. BUPIVACAINE INTRATHECAL [Suspect]
     Active Substance: BUPIVACAINE
  6. COMPOUNDED BACLOFEN INTRATHECAL [Suspect]
     Active Substance: BACLOFEN
     Indication: PAIN
  7. UNKNOWN ORAL MEDICATION [Suspect]
     Active Substance: UNSPECIFIED INGREDIENT
  8. PRIALT [Suspect]
     Active Substance: ZICONOTIDE ACETATE
  9. MORPHINE [Suspect]
     Active Substance: MORPHINE
  10. CLONIDINE. [Suspect]
     Active Substance: CLONIDINE

REACTIONS (22)
  - Gait disturbance [None]
  - Mental status changes [None]
  - Hyperhidrosis [None]
  - Seizure [None]
  - Tachycardia [None]
  - Drug withdrawal syndrome [None]
  - Condition aggravated [None]
  - Chills [None]
  - Neuropathy peripheral [None]
  - Therapeutic response decreased [None]
  - Cold sweat [None]
  - Abnormal behaviour [None]
  - Device computer issue [None]
  - Burning sensation [None]
  - Pain [None]
  - Suicidal ideation [None]
  - Pollakiuria [None]
  - Complex regional pain syndrome [None]
  - Device failure [None]
  - Overdose [None]
  - Underdose [None]
  - Nausea [None]
